FAERS Safety Report 10152974 (Version 3)
Quarter: 2015Q3

REPORT INFORMATION
  Report Type: Spontaneous
  Country: US (occurrence: US)
  Receive Date: 20140505
  Receipt Date: 20150817
  Transmission Date: 20151125
  Serious: Yes (Other)
  Sender: FDA-Public Use
  Company Number: US-GILEAD-2014-0101599

PATIENT
  Age: 65 Year
  Sex: Female

DRUGS (3)
  1. LETAIRIS [Suspect]
     Active Substance: AMBRISENTAN
     Indication: PULMONARY HYPERTENSION
     Dosage: 5 MG, QD
     Route: 065
     Dates: start: 20140226
  2. LETAIRIS [Suspect]
     Active Substance: AMBRISENTAN
     Indication: FLUID RETENTION
  3. LASIX [Concomitant]
     Active Substance: FUROSEMIDE

REACTIONS (3)
  - Fluid retention [Unknown]
  - Right ventricular failure [Unknown]
  - Dyspnoea [Unknown]
